FAERS Safety Report 18932756 (Version 2)
Quarter: 2021Q3

REPORT INFORMATION
  Report Type: Spontaneous
  Country: ID (occurrence: ID)
  Receive Date: 20210224
  Receipt Date: 20210707
  Transmission Date: 20211014
  Serious: Yes (Other)
  Sender: FDA-Public Use
  Company Number: ID-JNJFOC-20210229358

PATIENT
  Age: 46 Year
  Sex: Female
  Weight: 48 kg

DRUGS (14)
  1. DELAMANID [Suspect]
     Active Substance: DELAMANID
     Indication: TUBERCULOSIS
     Route: 065
     Dates: start: 20201220, end: 20210104
  2. LINEZOLID. [Suspect]
     Active Substance: LINEZOLID
     Indication: TUBERCULOSIS
     Route: 065
     Dates: start: 20201024, end: 20201215
  3. HALOPERIDOL. [Concomitant]
     Active Substance: HALOPERIDOL
     Route: 048
  4. SIRTURO [Suspect]
     Active Substance: BEDAQUILINE FUMARATE
     Dosage: 2 AFTER WEEK, BDQ DECREASE TO 200 MG EVERY MONDAY, WEDNESDAY, FRIDAY
     Route: 048
     Dates: start: 20201107, end: 20201215
  5. LEVOFLOXACIN. [Suspect]
     Active Substance: LEVOFLOXACIN
     Indication: TUBERCULOSIS
     Route: 065
     Dates: start: 20201024, end: 20201215
  6. CLOFAZIMINE [Suspect]
     Active Substance: CLOFAZIMINE
     Indication: TUBERCULOSIS
     Route: 065
     Dates: start: 20201024, end: 20201215
  7. CYCLOSERINE. [Suspect]
     Active Substance: CYCLOSERINE
     Indication: TUBERCULOSIS
     Route: 065
     Dates: start: 20201024, end: 20201215
  8. LANTUS [Concomitant]
     Active Substance: INSULIN GLARGINE
     Indication: DIABETES MELLITUS
     Dosage: 15 UNITS (22)
     Route: 058
  9. ETHAMBUTOL [Suspect]
     Active Substance: ETHAMBUTOL HYDROCHLORIDE
     Indication: TUBERCULOSIS
     Route: 065
     Dates: start: 20201222
  10. SANDEPRIL [Concomitant]
     Route: 048
  11. NOVORAPID [Concomitant]
     Active Substance: INSULIN ASPART
     Indication: DIABETES MELLITUS
     Dosage: 6?6?6 UNIT
     Route: 058
  12. GLIMEPIRIDE. [Concomitant]
     Active Substance: GLIMEPIRIDE
     Indication: DIABETES MELLITUS
  13. METFORMIN [Concomitant]
     Active Substance: METFORMIN HYDROCHLORIDE
     Indication: DIABETES MELLITUS
     Route: 048
  14. SIRTURO [Suspect]
     Active Substance: BEDAQUILINE FUMARATE
     Indication: TUBERCULOSIS
     Route: 048
     Dates: start: 20201024

REACTIONS (9)
  - Blood calcium decreased [Not Recovered/Not Resolved]
  - White blood cell count increased [Unknown]
  - Hallucination [Recovering/Resolving]
  - Hypoglycaemia [Not Recovered/Not Resolved]
  - Anaemia [Unknown]
  - Blood creatinine increased [Unknown]
  - Vomiting [Not Recovered/Not Resolved]
  - Electrocardiogram QT prolonged [Not Recovered/Not Resolved]
  - Nausea [Not Recovered/Not Resolved]

NARRATIVE: CASE EVENT DATE: 20201126
